FAERS Safety Report 10416488 (Version 1)
Quarter: 2014Q3

REPORT INFORMATION
  Report Type: Spontaneous
  Country: US (occurrence: None)
  Receive Date: 20140827
  Receipt Date: 20140827
  Transmission Date: 20150326
  Serious: No
  Sender: FDA-Public Use
  Company Number: None

PATIENT
  Age: 61 Year
  Sex: Female
  Weight: 108.86 kg

DRUGS (2)
  1. FENOFIBRATE. [Suspect]
     Active Substance: FENOFIBRATE
     Indication: BLOOD TRIGLYCERIDES INCREASED
     Dosage: 1X DAY
     Route: 048
     Dates: start: 20140709, end: 20140811
  2. FENOFIBRATE. [Suspect]
     Active Substance: FENOFIBRATE
     Indication: BLOOD CHOLESTEROL INCREASED
     Dosage: 1X DAY
     Route: 048
     Dates: start: 20140709, end: 20140811

REACTIONS (5)
  - Pain [None]
  - Headache [None]
  - Malaise [None]
  - Nausea [None]
  - Abdominal pain upper [None]

NARRATIVE: CASE EVENT DATE: 20140724
